FAERS Safety Report 5625215-6 (Version None)
Quarter: 2008Q1

REPORT INFORMATION
  Report Type: 
  Country: None (occurrence: None)
  Receive Date: 20080208
  Receipt Date: 20080131
  Transmission Date: 20080703
  Serious: Yes (Other)
  Sender: FDA-Public Use
  Company Number: TCI2008A00466

PATIENT
  Age: 43 Year
  Sex: Female

DRUGS (3)
  1. ACTOS [Suspect]
     Indication: DIABETES MELLITUS
     Dosage: PER ORAL
     Route: 048
  2. ANTI-DIABETICS [Suspect]
     Indication: DIABETES MELLITUS
     Dosage: INTRAVENOUS
     Route: 042
  3. METFORMIN HYDROCHLORIDE [Concomitant]

REACTIONS (2)
  - DIABETIC RETINOPATHY [None]
  - MACULAR OEDEMA [None]
